FAERS Safety Report 21194293 (Version 4)
Quarter: 2022Q3

REPORT INFORMATION
  Report Type: Spontaneous
  Country: US (occurrence: US)
  Receive Date: 20220810
  Receipt Date: 20220929
  Transmission Date: 20221027
  Serious: No
  Sender: FDA-Public Use
  Company Number: US-PFIZER INC-202201014460

PATIENT
  Age: 16 Year
  Sex: Male
  Weight: 86.18 kg

DRUGS (1)
  1. GENOTROPIN [Suspect]
     Active Substance: SOMATROPIN
     Indication: Hypopituitarism
     Dosage: 1 MG (6 TIMES A WEEK)

REACTIONS (4)
  - Device power source issue [Unknown]
  - Device use issue [Unknown]
  - Poor quality device used [Unknown]
  - Drug dose omission by device [Unknown]
